FAERS Safety Report 25251705 (Version 1)
Quarter: 2025Q2

REPORT INFORMATION
  Report Type: Spontaneous
  Country: IN (occurrence: IN)
  Receive Date: 20250429
  Receipt Date: 20250429
  Transmission Date: 20250717
  Serious: Yes (Hospitalization, Other)
  Sender: PFIZER
  Company Number: IN-PFIZER INC-PV202400161303

PATIENT
  Age: 50 Year
  Sex: Female
  Weight: 26 kg

DRUGS (5)
  1. CRIZOTINIB [Suspect]
     Active Substance: CRIZOTINIB
     Indication: Lung cancer metastatic
     Dosage: 250 MG, 2X/DAY (BID)
     Route: 048
  2. ZOLEDAC [Concomitant]
     Route: 042
  3. BECOSULES [ASCORBIC ACID;VITAMIN B NOS] [Concomitant]
     Dosage: UNK, 1X/DAY
  4. CORALIUM D3 [Concomitant]
     Dosage: UNK, 1X/DAY
  5. ULTRACET [Concomitant]
     Active Substance: ACETAMINOPHEN\TRAMADOL HYDROCHLORIDE

REACTIONS (3)
  - Lung cancer metastatic [Unknown]
  - Malignant neoplasm progression [Unknown]
  - Pleural effusion [Unknown]
